FAERS Safety Report 9564768 (Version 2)
Quarter: 2013Q4

REPORT INFORMATION
  Report Type: Spontaneous
  Country: US (occurrence: US)
  Receive Date: 20130930
  Receipt Date: 20131112
  Transmission Date: 20140711
  Serious: No
  Sender: FDA-Public Use
  Company Number: US-PFIZER INC-2013277154

PATIENT
  Age: 60 Year
  Sex: Male

DRUGS (9)
  1. SUTENT [Suspect]
     Indication: RENAL CANCER METASTATIC
     Dosage: 50 MG, DAILY, 4 WEEKS ON AND 2 WEEKS OFF
     Route: 048
     Dates: start: 20130306
  2. OXYCODONE [Concomitant]
     Dosage: UNK
  3. CEFUROXIME [Concomitant]
     Dosage: UNK
  4. SENNA [Concomitant]
     Dosage: UNK
  5. ATENOLOL [Concomitant]
     Dosage: UNK
  6. LEVOTHROID [Concomitant]
     Dosage: UNK
  7. CALCIUM [Concomitant]
     Dosage: UNK
  8. VITAMIN D [Concomitant]
     Dosage: UNK
  9. FENOFIBRATE [Concomitant]
     Dosage: UNK

REACTIONS (4)
  - Dyspnoea [Unknown]
  - Dry mouth [Unknown]
  - Fatigue [Unknown]
  - Dry mouth [Unknown]
